FAERS Safety Report 18702638 (Version 1)
Quarter: 2021Q1

REPORT INFORMATION
  Report Type: Spontaneous
  Country: US (occurrence: US)
  Receive Date: 20210105
  Receipt Date: 20210105
  Transmission Date: 20210419
  Serious: No
  Sender: FDA-Public Use
  Company Number: US-MYLANLABS-2020M1092723

PATIENT
  Age: 85 Year
  Sex: Female

DRUGS (1)
  1. WIXELA INHUB [Suspect]
     Active Substance: FLUTICASONE PROPIONATE\SALMETEROL XINAFOATE
     Indication: CHRONIC OBSTRUCTIVE PULMONARY DISEASE
     Dosage: 500/50 MCG, BID
     Route: 055
     Dates: start: 20200911, end: 20201103

REACTIONS (2)
  - Product quality issue [Unknown]
  - Device use issue [Unknown]

NARRATIVE: CASE EVENT DATE: 20200911
